FAERS Safety Report 7054386-2 (Version None)
Quarter: 2010Q4

REPORT INFORMATION
  Report Type: 
  Country: None (occurrence: None)
  Receive Date: 20101015
  Receipt Date: 20100929
  Transmission Date: 20110411
  Serious: Yes (Hospitalization)
  Sender: FDA-Public Use
  Company Number: 2010001374

PATIENT
  Age: 71 Year
  Sex: Female
  Weight: 48.2 kg

DRUGS (11)
  1. ERLOTINIB (ERLOTINIB) (TABLET) (ERLOTINIB) [Suspect]
     Indication: LUNG ADENOCARCINOMA
     Dosage: (150 MG, QD), ORAL; (50 MG, QD), ORAL; (25 MG, QD), ORAL
     Route: 048
     Dates: start: 20080206, end: 20080330
  2. ERLOTINIB (ERLOTINIB) (TABLET) (ERLOTINIB) [Suspect]
     Indication: LUNG ADENOCARCINOMA
     Dosage: (150 MG, QD), ORAL; (50 MG, QD), ORAL; (25 MG, QD), ORAL
     Route: 048
     Dates: start: 20080330, end: 20080331
  3. ERLOTINIB (ERLOTINIB) (TABLET) (ERLOTINIB) [Suspect]
     Indication: LUNG ADENOCARCINOMA
     Dosage: (150 MG, QD), ORAL; (50 MG, QD), ORAL; (25 MG, QD), ORAL
     Route: 048
     Dates: start: 20080410, end: 20100331
  4. ERLOTINIB (ERLOTINIB) (TABLET) (ERLOTINIB) [Suspect]
     Indication: LUNG ADENOCARCINOMA
     Dosage: (150 MG, QD), ORAL; (50 MG, QD), ORAL; (25 MG, QD), ORAL
     Route: 048
     Dates: start: 20100511
  5. NERIPROCT SUPPOSITORIES (DIFLUCORTOLONE VALERATE) [Concomitant]
  6. POSTERISAN (POSTERISAN) [Concomitant]
  7. AMOBAN (ZOPICLONE) [Concomitant]
  8. PIRENOXINE (PIRENOXINE) [Concomitant]
  9. RIKKUNSHI-TO [Concomitant]
  10. SAIKO-KEISHI-TO [Concomitant]
  11. LANSOPRAZOLE [Concomitant]

REACTIONS (8)
  - BRONCHITIS [None]
  - DERMAL CYST [None]
  - FATIGUE [None]
  - HEPATIC FUNCTION ABNORMAL [None]
  - PARONYCHIA [None]
  - PRINZMETAL ANGINA [None]
  - RASH [None]
  - STOMATITIS [None]
